FAERS Safety Report 20100254 (Version 1)
Quarter: 2021Q4

REPORT INFORMATION
  Report Type: Spontaneous
  Country: US (occurrence: US)
  Receive Date: 20211123
  Receipt Date: 20211123
  Transmission Date: 20220304
  Serious: No
  Sender: FDA-Public Use
  Company Number: US-ROCHE-2740968

PATIENT
  Age: 59 Year
  Sex: Female

DRUGS (1)
  1. TARCEVA [Suspect]
     Active Substance: ERLOTINIB HYDROCHLORIDE
     Indication: Non-small cell lung cancer
     Route: 048
     Dates: start: 201707

REACTIONS (6)
  - Lacrimation increased [Unknown]
  - Diarrhoea [Unknown]
  - Acne [Unknown]
  - Dry skin [Unknown]
  - Eye disorder [Unknown]
  - Skin laceration [Unknown]
